FAERS Safety Report 5315788-5 (Version None)
Quarter: 2007Q2

REPORT INFORMATION
  Report Type: 
  Country: None (occurrence: None)
  Receive Date: 20070503
  Receipt Date: 20070430
  Transmission Date: 20071010
  Serious: Yes (Hospitalization)
  Sender: FDA-Public Use
  Company Number: US-GLAXOSMITHKLINE-A0649291A

PATIENT
  Age: 15 Year
  Sex: Female

DRUGS (2)
  1. LAMICTAL [Suspect]
     Route: 048
     Dates: end: 20070412
  2. ADDERALL XR 10 [Concomitant]

REACTIONS (14)
  - ASTHENIA [None]
  - EATING DISORDER [None]
  - EYE DISORDER [None]
  - EYE SWELLING [None]
  - GALLBLADDER ENLARGEMENT [None]
  - INFECTION [None]
  - MOUTH ULCERATION [None]
  - NAUSEA [None]
  - PAIN [None]
  - PYREXIA [None]
  - RASH [None]
  - RASH MACULAR [None]
  - ROCKY MOUNTAIN SPOTTED FEVER [None]
  - VOMITING [None]
